FAERS Safety Report 8188762-1 (Version None)
Quarter: 2012Q1

REPORT INFORMATION
  Report Type: 
  Country: None (occurrence: None)
  Receive Date: 20120306
  Receipt Date: 20120228
  Transmission Date: 20120608
  Serious: No
  Sender: FDA-Public Use
  Company Number: US-BAYER-2012-021110

PATIENT
  Age: 43 Year
  Sex: Male
  Weight: 77 kg

DRUGS (1)
  1. ALEVE (CAPLET) [Suspect]
     Dosage: 2 U, UNK
     Route: 048
     Dates: start: 20120224, end: 20120224

REACTIONS (2)
  - NO ADVERSE EVENT [None]
  - THROAT IRRITATION [None]
